FAERS Safety Report 4409856-X (Version None)
Quarter: 2004Q3

REPORT INFORMATION
  Report Type: 
  Country: None (occurrence: None)
  Receive Date: 20040726
  Receipt Date: 20040623
  Transmission Date: 20050211
  Serious: Yes (Hospitalization)
  Sender: FDA-Public Use
  Company Number: FR-JNJFOC-20040605909

PATIENT
  Age: 36 Year
  Sex: Female
  Weight: 63 kg

DRUGS (5)
  1. REMICADE [Suspect]
     Indication: ANKYLOSING SPONDYLITIS
     Dosage: INTRAVENOUS
     Route: 042
     Dates: start: 20030903, end: 20031015
  2. NAPROXEN SODIUM [Concomitant]
  3. COTANCYL (PREDNISONE) [Concomitant]
  4. KALEORID LEO (POTASSIUM CHLORIDE) [Concomitant]
  5. INIPOMP (PANTOPRAZOLE) [Concomitant]

REACTIONS (3)
  - ASTHENIA [None]
  - CONDITION AGGRAVATED [None]
  - SENSORY DISTURBANCE [None]
